FAERS Safety Report 13344982 (Version 1)
Quarter: 2017Q1

REPORT INFORMATION
  Report Type: Spontaneous
  Country: US (occurrence: US)
  Receive Date: 20170316
  Receipt Date: 20170316
  Transmission Date: 20170428
  Serious: Yes (Hospitalization)
  Sender: FDA-Public Use
  Company Number: None

PATIENT
  Age: 55 Year
  Sex: Male

DRUGS (1)
  1. IMATINIB MESYLATE 400 MG TABLET [Suspect]
     Active Substance: IMATINIB MESYLATE
     Indication: MYELOID LEUKAEMIA
     Route: 048
     Dates: start: 20130923

REACTIONS (3)
  - Fall [None]
  - Drug dose omission [None]
  - Rib fracture [None]

NARRATIVE: CASE EVENT DATE: 2017
